FAERS Safety Report 6380777-9 (Version None)
Quarter: 2009Q3

REPORT INFORMATION
  Report Type: 
  Country: None (occurrence: None)
  Receive Date: 20090925
  Receipt Date: 20090925
  Transmission Date: 20100115
  Serious: Yes (Other)
  Sender: FDA-Public Use
  Company Number: None

PATIENT
  Age: 65 Year
  Sex: Female
  Weight: 65.4 kg

DRUGS (10)
  1. SORAFENIB 200 MG BAYER [Suspect]
     Indication: BREAST CANCER METASTATIC
     Dosage: 200 MG DAILY PO
     Route: 048
     Dates: start: 20090211, end: 20090923
  2. VINORELBINE [Suspect]
     Indication: BREAST CANCER METASTATIC
     Dosage: 20 MG/M2 WEEKLY X 3 IV
     Route: 042
     Dates: start: 20090211, end: 20090923
  3. ATENOLOL [Concomitant]
  4. ATIVAN [Concomitant]
  5. CALCIUM PLUS VITAMIN D [Concomitant]
  6. FISH OIL CAPSULES [Concomitant]
  7. ZESTORETIC [Concomitant]
  8. POTASSIUM CHLORIDE [Concomitant]
  9. PRILOSEC [Concomitant]
  10. TYLENOL (CAPLET) [Concomitant]

REACTIONS (2)
  - SKIN PAPILLOMA [None]
  - SQUAMOUS CELL CARCINOMA OF SKIN [None]
